FAERS Safety Report 4473003-9 (Version None)
Quarter: 2004Q4

REPORT INFORMATION
  Report Type: 
  Country: None (occurrence: None)
  Receive Date: 20041013
  Receipt Date: 20040929
  Transmission Date: 20050328
  Serious: Yes (Hospitalization)
  Sender: FDA-Public Use
  Company Number: US-ROCHE-381967

PATIENT
  Age: 50 Year
  Sex: Female

DRUGS (2)
  1. PEGASYS [Suspect]
     Indication: DRUG USE FOR UNKNOWN INDICATION
     Dosage: ROUTE REPORTED AS INJECTION
     Route: 050
     Dates: start: 20040818, end: 20040920
  2. RIBAVIRIN [Suspect]
     Indication: DRUG USE FOR UNKNOWN INDICATION
     Route: 048
     Dates: start: 20040818, end: 20040920

REACTIONS (10)
  - BLOOD GLUCOSE ABNORMAL [None]
  - BLOOD GLUCOSE INCREASED [None]
  - CONVULSION [None]
  - DISORIENTATION [None]
  - DYSPNOEA [None]
  - HALLUCINATION [None]
  - MYOCARDIAL INFARCTION [None]
  - PNEUMONIA [None]
  - SCREAMING [None]
  - WHEEZING [None]
